FAERS Safety Report 6832906-8 (Version None)
Quarter: 2010Q3

REPORT INFORMATION
  Report Type: 
  Country: None (occurrence: None)
  Receive Date: 20100712
  Receipt Date: 20070316
  Transmission Date: 20110219
  Serious: No
  Sender: FDA-Public Use
  Company Number: US-PFIZER INC-2007022684

PATIENT
  Sex: Male
  Weight: 94.35 kg

DRUGS (10)
  1. CHANTIX [Suspect]
     Indication: SMOKING CESSATION THERAPY
     Route: 048
     Dates: start: 20070301
  2. COREG [Concomitant]
     Indication: BLOOD PRESSURE ABNORMAL
  3. VALSARTAN [Concomitant]
     Indication: BLOOD PRESSURE ABNORMAL
  4. NORVASC [Concomitant]
  5. SULINDAC [Concomitant]
  6. ACETYLSALICYLIC ACID [Concomitant]
  7. NEXIUM [Concomitant]
  8. CRESTOR [Concomitant]
  9. FLEXERIL [Concomitant]
     Indication: SHOULDER OPERATION
  10. TAMSULOSIN HYDROCHLORIDE [Concomitant]

REACTIONS (1)
  - TOBACCO USER [None]
